FAERS Safety Report 9554461 (Version 2)
Quarter: 2013Q4

REPORT INFORMATION
  Report Type: Spontaneous
  Country: US (occurrence: US)
  Receive Date: 20130925
  Receipt Date: 20131028
  Transmission Date: 20140711
  Serious: No
  Sender: FDA-Public Use
  Company Number: US-009507513-1309USA009661

PATIENT
  Age: 20 Year
  Sex: Female
  Weight: 62.13 kg

DRUGS (1)
  1. IMPLANON [Suspect]
     Indication: CONTRACEPTION
     Dosage: 1 DF, UNK
     Route: 059
     Dates: start: 20120816

REACTIONS (2)
  - Device kink [Recovered/Resolved]
  - Product quality issue [Unknown]
